FAERS Safety Report 16941744 (Version 1)
Quarter: 2019Q4

REPORT INFORMATION
  Report Type: Spontaneous
  Country: CA (occurrence: CA)
  Receive Date: 20191021
  Receipt Date: 20191021
  Transmission Date: 20200122
  Serious: Yes (Hospitalization)
  Sender: FDA-Public Use
  Company Number: CA-TEVA-2019-CA-1124756

PATIENT
  Age: 15 Year
  Sex: Female
  Weight: 45 kg

DRUGS (13)
  1. VINCRISTINE SULFATE. [Suspect]
     Active Substance: VINCRISTINE SULFATE
     Indication: HODGKIN^S DISEASE
     Route: 042
  2. LIPOSOMAL DOXORUBICINE [Concomitant]
     Active Substance: DOXORUBICIN HYDROCHLORIDE
  3. MELPHALAN. [Concomitant]
     Active Substance: MELPHALAN
  4. METHYLPREDNISOLONE NOS [Concomitant]
     Active Substance: METHYLPREDNISOLONE
  5. CYCLOPHOSPHAMIDE. [Suspect]
     Active Substance: CYCLOPHOSPHAMIDE
     Indication: HODGKIN^S DISEASE
     Route: 042
  6. ADCETRIS [Concomitant]
     Active Substance: BRENTUXIMAB VEDOTIN
  7. DEXAMETHASONE. [Concomitant]
     Active Substance: DEXAMETHASONE
  8. PREDNISONE. [Concomitant]
     Active Substance: PREDNISONE
  9. ETOPOSIDE. [Concomitant]
     Active Substance: ETOPOSIDE
  10. VINORELBINE TARTRATE FOR INJECTION [Concomitant]
     Active Substance: VINORELBINE TARTRATE
  11. BLEOMYCIN SULFATE FOR INJECTION USP [Suspect]
     Active Substance: BLEOMYCIN SULFATE
     Indication: HODGKIN^S DISEASE
     Route: 042
  12. BUSULFAN. [Concomitant]
     Active Substance: BUSULFAN
  13. GEMCITABINE. [Concomitant]
     Active Substance: GEMCITABINE

REACTIONS (1)
  - Mucosal inflammation [Recovering/Resolving]
